FAERS Safety Report 7867361-2 (Version None)
Quarter: 2011Q4

REPORT INFORMATION
  Report Type: 
  Country: None (occurrence: None)
  Receive Date: 20111028
  Receipt Date: 20111025
  Transmission Date: 20120403
  Serious: Yes (Other)
  Sender: FDA-Public Use
  Company Number: DE-BRISTOL-MYERS SQUIBB COMPANY-16203184

PATIENT
  Sex: Female
  Weight: 2 kg

DRUGS (1)
  1. ABILIFY [Suspect]
     Dosage: 1 DOSAGE FORM=10 TO 15MG DAILY
     Route: 064

REACTIONS (2)
  - MATERNAL DRUGS AFFECTING FOETUS [None]
  - PREMATURE BABY [None]
